FAERS Safety Report 5123665-8 (Version None)
Quarter: 2006Q4

REPORT INFORMATION
  Report Type: 
  Country: None (occurrence: None)
  Receive Date: 20061010
  Receipt Date: 20060130
  Transmission Date: 20070319
  Serious: Yes (Hospitalization)
  Sender: FDA-Public Use
  Company Number: FRWYE346230JAN06

PATIENT
  Sex: Female

DRUGS (4)
  1. ENBREL [Suspect]
     Indication: PSORIATIC ARTHROPATHY
     Route: 058
     Dates: start: 20051214, end: 20060124
  2. BI-PROFENID [Concomitant]
     Indication: PSORIATIC ARTHROPATHY
     Dosage: 300 MG TOTAL DAILY
     Route: 048
  3. IXPRIM [Concomitant]
     Indication: PSORIATIC ARTHROPATHY
     Dosage: 5 TABLETS TOTAL DAILY
     Route: 048
     Dates: start: 20050601
  4. CORTANCYL [Concomitant]
     Indication: PSORIATIC ARTHROPATHY
     Dosage: 40 MG TOTAL DAILY
     Route: 048
     Dates: start: 20000101

REACTIONS (13)
  - CONVULSION [None]
  - CUTANEOUS VASCULITIS [None]
  - DERMATITIS BULLOUS [None]
  - DRUG ERUPTION [None]
  - ENDOCARDITIS STAPHYLOCOCCAL [None]
  - GROIN PAIN [None]
  - HAEMOGLOBIN DECREASED [None]
  - JOINT EFFUSION [None]
  - PATHOGEN RESISTANCE [None]
  - PLATELET COUNT INCREASED [None]
  - PULMONARY EMBOLISM [None]
  - STAPHYLOCOCCAL SEPSIS [None]
  - TENOSYNOVITIS [None]
